FAERS Safety Report 5141993-7 (Version None)
Quarter: 2006Q4

REPORT INFORMATION
  Report Type: 
  Country: None (occurrence: None)
  Receive Date: 20061102
  Receipt Date: 20060912
  Transmission Date: 20070319
  Serious: Yes (Other)
  Sender: FDA-Public Use
  Company Number: PHEH2006US11628

PATIENT
  Age: 44 Year
  Sex: Male

DRUGS (2)
  1. LAMISIL [Suspect]
     Indication: NAIL TINEA
     Dosage: 250 MG, QD
     Route: 048
     Dates: start: 20060828
  2. LOPROX [Concomitant]
     Indication: PITYRIASIS ROSEA
     Dosage: UNK, UNK
     Route: 061
     Dates: start: 20060823, end: 20060830

REACTIONS (6)
  - ACNE [None]
  - EMOTIONAL DISTRESS [None]
  - RASH ERYTHEMATOUS [None]
  - RASH PUSTULAR [None]
  - SKIN INFLAMMATION [None]
  - SUICIDAL IDEATION [None]
